FAERS Safety Report 9500565 (Version 3)
Quarter: 2013Q4

REPORT INFORMATION
  Report Type: Report from Study
  Country: US (occurrence: US)
  Receive Date: 20130107
  Receipt Date: 20131226
  Transmission Date: 20140711
  Serious: Yes (Other)
  Sender: FDA-Public Use
  Company Number: PHHY2012US100691

PATIENT
  Age: 45 Year
  Sex: Female

DRUGS (2)
  1. GILENYA [Suspect]
     Indication: MULTIPLE SCLEROSIS
     Dosage: 0.5 MG, QD
     Route: 048
     Dates: start: 20101221, end: 20130806
  2. DIOVAN [Concomitant]
     Indication: HYPERTENSION

REACTIONS (19)
  - Optic neuritis [Not Recovered/Not Resolved]
  - Osteomyelitis [Not Recovered/Not Resolved]
  - Localised infection [Not Recovered/Not Resolved]
  - Wound [Not Recovered/Not Resolved]
  - Impaired healing [Not Recovered/Not Resolved]
  - Ingrowing nail [Unknown]
  - Abnormal sensation in eye [Not Recovered/Not Resolved]
  - Strabismus [Not Recovered/Not Resolved]
  - Motion sickness [Unknown]
  - Palpitations [Not Recovered/Not Resolved]
  - Vomiting [Unknown]
  - Nausea [Unknown]
  - Erythema [Not Recovered/Not Resolved]
  - Headache [Unknown]
  - Urinary tract infection [Not Recovered/Not Resolved]
  - Sinusitis [Not Recovered/Not Resolved]
  - Eye pain [Unknown]
  - Facial pain [Unknown]
  - Localised infection [None]
